FAERS Safety Report 4525844-7 (Version None)
Quarter: 2004Q4

REPORT INFORMATION
  Report Type: 
  Country: None (occurrence: None)
  Receive Date: 20041124
  Receipt Date: 20031119
  Transmission Date: 20050328
  Serious: Yes (Other)
  Sender: FDA-Public Use
  Company Number: 2003119532

PATIENT
  Age: 61 Year
  Sex: Female
  Weight: 72.5755 kg

DRUGS (10)
  1. TIKOSYN [Suspect]
     Indication: ATRIAL FIBRILLATION
     Dosage: 1000 MCG (BID), ORAL
     Route: 048
     Dates: start: 20031029
  2. CARVEDILOL [Concomitant]
  3. ALL OTHER THERAPEUTIC PRODUCTS (ALL OTHER THERAPEUTIC PRODUCTS) [Concomitant]
  4. MAGNESIUM OXIDE (MAGNESIUM OXIDE) [Concomitant]
  5. ASCORBIC ACID [Concomitant]
  6. VITAMINS NOS (VITAMINS NOS) [Concomitant]
  7. FISH OIL (FISH OIL) [Concomitant]
  8. WARFARIN SODIUM [Concomitant]
  9. ESCITALOPRAM (ESCITALOPRAM) [Concomitant]
  10. CITALOPRAM HYDROBROMIDE [Concomitant]

REACTIONS (8)
  - ATRIAL FIBRILLATION [None]
  - CARDIOVERSION [None]
  - CHEST PAIN [None]
  - COUGH [None]
  - DIARRHOEA [None]
  - DIZZINESS [None]
  - DYSPNOEA EXACERBATED [None]
  - HEART RATE INCREASED [None]
